FAERS Safety Report 6167148-5 (Version None)
Quarter: 2009Q2

REPORT INFORMATION
  Report Type: 
  Country: None (occurrence: None)
  Receive Date: 20090424
  Receipt Date: 20090416
  Transmission Date: 20091009
  Serious: Yes (Hospitalization)
  Sender: FDA-Public Use
  Company Number: US-MERCK-0904USA03493

PATIENT
  Age: 64 Year
  Sex: Female

DRUGS (2)
  1. HYDRODIURIL [Suspect]
     Route: 048
  2. CHLORPROPAMIDE [Suspect]
     Route: 065

REACTIONS (4)
  - ANGIOPATHY [None]
  - CONFUSIONAL STATE [None]
  - HYPONATRAEMIA [None]
  - TRANSIENT ISCHAEMIC ATTACK [None]
